FAERS Safety Report 11802874 (Version 1)
Quarter: 2015Q4

REPORT INFORMATION
  Report Type: Spontaneous
  Country: US (occurrence: None)
  Receive Date: 20151203
  Receipt Date: 20151203
  Transmission Date: 20160305
  Serious: Yes (Other)
  Sender: FDA-Public Use
  Company Number: None

PATIENT
  Age: 30 Year
  Sex: Male
  Weight: 77.11 kg

DRUGS (8)
  1. ENBREL [Concomitant]
     Active Substance: ETANERCEPT
  2. METHOTREXATE [Concomitant]
     Active Substance: METHOTREXATE
  3. PROTONIX [Concomitant]
     Active Substance: PANTOPRAZOLE SODIUM
  4. ZOVIRAX [Concomitant]
     Active Substance: ACYCLOVIR
  5. OTEZLA [Suspect]
     Active Substance: APREMILAST
     Indication: PSORIASIS
     Dosage: STARTER PACK DOSAGE
     Route: 048
     Dates: start: 20151127, end: 20151201
  6. OTEZLA [Suspect]
     Active Substance: APREMILAST
     Indication: PSORIATIC ARTHROPATHY
     Dosage: STARTER PACK DOSAGE
     Route: 048
     Dates: start: 20151127, end: 20151201
  7. VITAMIN D3 [Concomitant]
     Active Substance: CHOLECALCIFEROL
  8. ADDERALL [Concomitant]
     Active Substance: AMPHETAMINE ASPARTATE\AMPHETAMINE SULFATE\DEXTROAMPHETAMINE SACCHARATE\DEXTROAMPHETAMINE SULFATE

REACTIONS (8)
  - Insomnia [None]
  - Fatigue [None]
  - Major depression [None]
  - Anxiety [None]
  - Agitation [None]
  - Anhedonia [None]
  - Dysphoria [None]
  - Decreased appetite [None]

NARRATIVE: CASE EVENT DATE: 20151201
